FAERS Safety Report 17508889 (Version 1)
Quarter: 2020Q1

REPORT INFORMATION
  Report Type: Spontaneous
  Country: US (occurrence: US)
  Receive Date: 20200306
  Receipt Date: 20200306
  Transmission Date: 20200409
  Serious: Yes (Death, Other)
  Sender: FDA-Public Use
  Company Number: US-STRIDES ARCOLAB LIMITED-2020SP002169

PATIENT
  Age: 78 Year
  Sex: Male

DRUGS (1)
  1. LIDOCAINE. [Suspect]
     Active Substance: LIDOCAINE
     Indication: PRODUCT USED FOR UNKNOWN INDICATION
     Dosage: UNK
     Route: 042

REACTIONS (8)
  - Wrong product administered [Fatal]
  - Cardiac arrest [Fatal]
  - Hypertension [Unknown]
  - Ventricular tachycardia [Unknown]
  - Cardiac tamponade [Fatal]
  - Hypotension [Unknown]
  - Shock [Fatal]
  - Tachycardia [Unknown]
